FAERS Safety Report 8807404 (Version 1)
Quarter: 2012Q4

REPORT INFORMATION
  Report Type: 
  Country: US (occurrence: US)
  Receive Date: 20120925
  Receipt Date: 20120925
  Transmission Date: 20130627
  Serious: No
  Sender: FDA-Public Use
  Company Number: US-B.I. PHARMACEUTICALS,INC./RIDGEFIELD-2012-BP-23243BP

PATIENT
  Age: 83 Year
  Sex: Male
  Weight: 111 kg

DRUGS (15)
  1. SPIRIVA [Suspect]
     Indication: LUNG DISORDER
     Dosage: 18 mcg
     Route: 055
     Dates: start: 2010, end: 201203
  2. SPIRIVA [Suspect]
     Dosage: 18 mcg
     Route: 055
     Dates: start: 20120914
  3. AGGRENOX [Suspect]
     Indication: CEREBROVASCULAR ACCIDENT PROPHYLAXIS
     Route: 048
  4. POTASSIUM [Concomitant]
     Dosage: 16 mEq
     Route: 048
  5. FUROSEMIDE [Concomitant]
     Indication: FLUID RETENTION
     Dosage: 80 mg
     Route: 048
  6. CLINDAMYCIN [Concomitant]
     Indication: DENTAL CARE
     Dosage: 600 mg
     Route: 048
  7. VITAMIN C [Concomitant]
     Dosage: 500 mg
     Route: 048
  8. LEVOTHYROXINE [Concomitant]
     Indication: HYPOTHYROIDISM
     Dosage: 0.25 mcg
     Route: 048
  9. SIMVASTATIN [Concomitant]
     Indication: BLOOD CHOLESTEROL INCREASED
     Dosage: 80 mg
     Route: 048
  10. ALPHA LIPOIC ACID [Concomitant]
     Indication: NEUROPATHY PERIPHERAL
     Dosage: 600 mg
     Route: 048
  11. OMEPRAZOLE [Concomitant]
     Indication: GASTRIC DISORDER
     Route: 048
  12. ATENOLOL [Concomitant]
     Indication: HYPERTENSION
     Dosage: 25 mg
     Route: 048
  13. GABAPENTIN [Concomitant]
     Indication: NEUROPATHY PERIPHERAL
     Dosage: 1200 mg
     Route: 048
  14. VITAMIN E [Concomitant]
     Dosage: 400 mg
     Route: 048
  15. ETODOLAC [Concomitant]
     Dosage: 600 mg
     Route: 048

REACTIONS (1)
  - Dyspnoea [Not Recovered/Not Resolved]
